FAERS Safety Report 8677360 (Version 2)
Quarter: 2012Q4

REPORT INFORMATION
  Report Type: 
  Country: US (occurrence: US)
  Receive Date: 20120723
  Receipt Date: 20120927
  Transmission Date: 20130627
  Serious: Yes (Hospitalization)
  Sender: FDA-Public Use
  Company Number: US-BRISTOL-MYERS SQUIBB COMPANY-16723009

PATIENT
  Age: 66 Year
  Sex: Female

DRUGS (31)
  1. COUMADIN [Suspect]
     Indication: ATRIAL FIBRILLATION
     Route: 048
  2. SOLIRIS [Suspect]
     Indication: PAROXYSMAL NOCTURNAL HAEMOGLOBINURIA
     Dosage: 900mg,q2w,IVMay12
     Route: 042
     Dates: start: 20120411, end: 20120509
  3. ACETAMINOPHEN [Concomitant]
  4. ALLOPURINOL [Concomitant]
  5. ASCORBIC ACID [Concomitant]
  6. AZITHROMYCIN [Concomitant]
  7. CALCIUM CARBONATE [Concomitant]
  8. CHOLECALCIFEROL [Concomitant]
  9. COREG [Concomitant]
  10. KEFLEX [Concomitant]
  11. CITALOPRAM [Concomitant]
  12. COLCHICINE [Concomitant]
  13. DICYCLOMINE [Concomitant]
  14. DILTIAZEM HCL [Concomitant]
  15. ARICEPT [Concomitant]
  16. FERROUS SULFATE [Concomitant]
  17. FOLIC ACID [Concomitant]
  18. LASIX [Concomitant]
  19. HYDROCODONE BITARTRATE [Concomitant]
  20. NORCO [Concomitant]
  21. LEVOTHYROXINE [Concomitant]
  22. LOPERAMIDE [Concomitant]
  23. SIMETICONE [Concomitant]
  24. MULTIVITAMIN [Concomitant]
  25. VITAMIN B [Concomitant]
  26. ROPINIROLE [Concomitant]
  27. OMEGA 3 FISH OIL [Concomitant]
  28. TRAMADOL [Concomitant]
  29. TROSPIUM CHLORIDE [Concomitant]
  30. ZOLEDRONIC ACID [Concomitant]
  31. AMBIEN [Concomitant]

REACTIONS (16)
  - Fall [Unknown]
  - Atypical pneumonia [Recovering/Resolving]
  - Lumbar vertebral fracture [Unknown]
  - Normal pressure hydrocephalus [Unknown]
  - Restless legs syndrome [Unknown]
  - Gout [Unknown]
  - Dementia Alzheimer^s type [Unknown]
  - Renal failure chronic [Unknown]
  - Mitral valve stenosis [Unknown]
  - Escherichia urinary tract infection [Unknown]
  - Thrombocytopenia [Unknown]
  - Depression [Unknown]
  - Contusion [Unknown]
  - Hypothyroidism [Unknown]
  - Hypertension [Unknown]
  - International normalised ratio increased [Unknown]
